FAERS Safety Report 10306920 (Version 2)
Quarter: 2014Q3

REPORT INFORMATION
  Report Type: Other
  Country: None (occurrence: US)
  Receive Date: 20140715
  Receipt Date: 20140715
  Transmission Date: 20150326
  Serious: Yes (Death, Other)
  Sender: FDA-Public Use
  Company Number: US-GSKPPD-2014GSK003388

PATIENT
  Age: 71 Year
  Sex: Male
  Weight: 123.49 kg

DRUGS (5)
  1. AVANDIA [Suspect]
     Active Substance: ROSIGLITAZONE MALEATE
     Indication: DIABETES MELLITUS
     Dosage: DATES OF AVANDIA USE COULD NOT BE CONFIRMED IN RECORDS REVIEWED.
     Route: 048
  2. FUROSEMIDE. [Concomitant]
     Active Substance: FUROSEMIDE
  3. FELODIPINE. [Concomitant]
     Active Substance: FELODIPINE
  4. SIMVASTATIN. [Concomitant]
     Active Substance: SIMVASTATIN
  5. WARFARIN [Concomitant]
     Active Substance: WARFARIN
     Route: 048

REACTIONS (2)
  - Ventricular arrhythmia [Fatal]
  - Cardiac failure congestive [None]

NARRATIVE: CASE EVENT DATE: 20070625
